FAERS Safety Report 20873095 (Version 2)
Quarter: 2022Q3

REPORT INFORMATION
  Report Type: Report from Study
  Country: ES (occurrence: ES)
  Receive Date: 20220525
  Receipt Date: 20220725
  Transmission Date: 20221026
  Serious: Yes (Hospitalization)
  Sender: FDA-Public Use
  Company Number: ES-TAKEDA-2022TUS033871

PATIENT
  Age: 6 Year
  Sex: Female

DRUGS (29)
  1. TEDUGLUTIDE [Suspect]
     Active Substance: TEDUGLUTIDE
     Indication: Short-bowel syndrome
     Dosage: 0.500 MILLIGRAM
     Route: 042
     Dates: start: 20200122, end: 20200413
  2. TEDUGLUTIDE [Suspect]
     Active Substance: TEDUGLUTIDE
     Indication: Short-bowel syndrome
     Dosage: 0.500 MILLIGRAM
     Route: 042
     Dates: start: 20200122, end: 20200413
  3. TEDUGLUTIDE [Suspect]
     Active Substance: TEDUGLUTIDE
     Indication: Short-bowel syndrome
     Dosage: 0.500 MILLIGRAM
     Route: 042
     Dates: start: 20200122, end: 20200413
  4. TEDUGLUTIDE [Suspect]
     Active Substance: TEDUGLUTIDE
     Indication: Short-bowel syndrome
     Dosage: 0.500 MILLIGRAM
     Route: 042
     Dates: start: 20200122, end: 20200413
  5. TACROLIMUS [Concomitant]
     Active Substance: TACROLIMUS
     Indication: Transplant
     Dosage: 2.80 MILLIGRAM, BID
     Route: 048
     Dates: start: 20211103, end: 20211213
  6. TACROLIMUS [Concomitant]
     Active Substance: TACROLIMUS
     Dosage: 2.40 MILLIGRAM, BID
     Route: 048
     Dates: start: 20211213, end: 20220304
  7. TACROLIMUS [Concomitant]
     Active Substance: TACROLIMUS
     Dosage: 3.2 MILLIGRAM, BID
     Route: 048
     Dates: start: 20211015, end: 20211103
  8. TACROLIMUS [Concomitant]
     Active Substance: TACROLIMUS
     Dosage: 2 MILLIGRAM, BID
     Route: 048
     Dates: start: 20220304
  9. PREDNISONE [Concomitant]
     Active Substance: PREDNISONE
     Indication: Transplant
     Dosage: 30 MILLIGRAM, QD
     Route: 048
     Dates: start: 20211015, end: 20211118
  10. PREDNISONE [Concomitant]
     Active Substance: PREDNISONE
     Dosage: 20 MILLIGRAM, QD
     Route: 048
     Dates: start: 20211118
  11. URSODIOL [Concomitant]
     Active Substance: URSODIOL
     Indication: Cholelithiasis
     Dosage: 2.5 MILLILITER, TID
     Route: 048
     Dates: start: 2016, end: 20210416
  12. URSODIOL [Concomitant]
     Active Substance: URSODIOL
     Dosage: 3 MILLILITER, TID
     Route: 048
     Dates: start: 20210416, end: 20211020
  13. AMOXICILLIN [Concomitant]
     Active Substance: AMOXICILLIN
     Dosage: 5 MILLILITER, TID
     Route: 048
     Dates: start: 20200505, end: 20200518
  14. METRONIDAZOLE [Concomitant]
     Active Substance: METRONIDAZOLE
     Dosage: 3 MILLILITER, BID
     Route: 048
     Dates: start: 20200505, end: 20200518
  15. OMEPRAZOLE [Concomitant]
     Active Substance: OMEPRAZOLE
     Indication: Prophylaxis
     Dosage: 5 MILLILITER, BID
     Route: 048
     Dates: start: 20200505, end: 20200518
  16. OMEPRAZOLE [Concomitant]
     Active Substance: OMEPRAZOLE
     Dosage: 5 MILLILITER, BID
     Route: 048
     Dates: start: 20210518, end: 20220304
  17. PRUCALOPRIDE [Concomitant]
     Active Substance: PRUCALOPRIDE
     Dosage: 0.33 MILLIGRAM, QD
     Route: 048
     Dates: start: 20200506
  18. ENOXAPARIN SODIUM [Concomitant]
     Active Substance: ENOXAPARIN SODIUM
     Indication: Thrombosis
     Dosage: 1500 INTERNATIONAL UNIT, QD
     Route: 058
     Dates: start: 2020, end: 20200918
  19. ENOXAPARIN SODIUM [Concomitant]
     Active Substance: ENOXAPARIN SODIUM
     Dosage: 20 MILLIGRAM, QD
     Route: 058
     Dates: start: 20211015
  20. BUDESONIDE [Concomitant]
     Active Substance: BUDESONIDE
     Indication: Duodenitis
     Dosage: 2 MILLILITER, BID
     Route: 048
     Dates: start: 20201007, end: 20210304
  21. BUDESONIDE [Concomitant]
     Active Substance: BUDESONIDE
     Indication: Mucosal ulceration
  22. PREDNISOLONE STEAGLATE [Concomitant]
     Active Substance: PREDNISOLONE STEAGLATE
     Indication: Duodenitis
     Dosage: 2.5 MILLILITER, QD
     Route: 048
     Dates: start: 20210304, end: 20210315
  23. PREDNISOLONE STEAGLATE [Concomitant]
     Active Substance: PREDNISOLONE STEAGLATE
     Dosage: 2 MILLILITER, QD
     Route: 048
     Dates: start: 20210316, end: 20210321
  24. PREDNISOLONE STEAGLATE [Concomitant]
     Active Substance: PREDNISOLONE STEAGLATE
     Dosage: 1.5 MILLILITER, QD
     Route: 048
     Dates: start: 20210322, end: 20210328
  25. PREDNISOLONE STEAGLATE [Concomitant]
     Active Substance: PREDNISOLONE STEAGLATE
     Dosage: 1 MILLILITER, QD
     Route: 048
     Dates: start: 20210329, end: 20210404
  26. PREDNISOLONE STEAGLATE [Concomitant]
     Active Substance: PREDNISOLONE STEAGLATE
     Dosage: 0.5 MILLILITER, QD
     Route: 048
     Dates: start: 20210405, end: 20210412
  27. SULFAMETHOXAZOLE\TRIMETHOPRIM [Concomitant]
     Active Substance: SULFAMETHOXAZOLE\TRIMETHOPRIM
     Indication: Transplant
     Dosage: 4.5 MILLILITER, 3/WEEK
     Route: 048
     Dates: start: 20211015
  28. VALGANCICLOVIR [Concomitant]
     Active Substance: VALGANCICLOVIR
     Indication: Prophylaxis
     Dosage: 4 MILLILITER, QD
     Route: 048
     Dates: start: 20211015, end: 20211213
  29. CEFOTAXIME [Concomitant]
     Active Substance: CEFOTAXIME SODIUM
     Indication: Tonsillitis
     Dosage: 500 MILLIGRAM
     Route: 042
     Dates: start: 20220116, end: 20220119

REACTIONS (1)
  - Ileostomy closure [Recovered/Resolved]

NARRATIVE: CASE EVENT DATE: 20220121
